FAERS Safety Report 16208721 (Version 1)
Quarter: 2019Q2

REPORT INFORMATION
  Report Type: Spontaneous
  Country: US (occurrence: US)
  Receive Date: 20190417
  Receipt Date: 20190417
  Transmission Date: 20190711
  Serious: Yes (Other)
  Sender: FDA-Public Use
  Company Number: US-ELI_LILLY_AND_COMPANY-US201904005115

PATIENT
  Sex: Female

DRUGS (1)
  1. BASAGLAR [Suspect]
     Active Substance: INSULIN GLARGINE
     Indication: PRODUCT USED FOR UNKNOWN INDICATION
     Dosage: UNK, UNKNOWN
     Route: 065

REACTIONS (12)
  - Abdominal discomfort [Unknown]
  - Fatigue [Unknown]
  - Blood glucose decreased [Unknown]
  - Atrial fibrillation [Unknown]
  - Blood glucose increased [Unknown]
  - Feeling abnormal [Unknown]
  - Muscular weakness [Unknown]
  - Product dose omission [Unknown]
  - Oral discomfort [Unknown]
  - Cerebral disorder [Unknown]
  - Tremor [Unknown]
  - Dizziness [Unknown]
